FAERS Safety Report 9354322 (Version 1)
Quarter: 2013Q2

REPORT INFORMATION
  Report Type: Spontaneous
  Country: BR (occurrence: BR)
  Receive Date: 20130618
  Receipt Date: 20130618
  Transmission Date: 20140414
  Serious: Yes (Hospitalization)
  Sender: FDA-Public Use
  Company Number: BR-ASTRAZENECA-2013SE42344

PATIENT
  Age: 22460 Day
  Sex: Male
  Weight: 72 kg

DRUGS (2)
  1. BRILINTA [Suspect]
     Indication: MYOCARDIAL INFARCTION
     Route: 048
     Dates: start: 20130301
  2. DIOVAN [Concomitant]
     Indication: HYPERTENSION

REACTIONS (1)
  - Coronary artery occlusion [Recovered/Resolved]
